FAERS Safety Report 6328966-3 (Version None)
Quarter: 2009Q3

REPORT INFORMATION
  Report Type: 
  Country: None (occurrence: None)
  Receive Date: 20090818
  Receipt Date: 20090714
  Transmission Date: 20100115
  Serious: No
  Sender: FDA-Public Use
  Company Number: WAES 0907USA02059

PATIENT
  Age: 63 Year
  Sex: Male

DRUGS (4)
  1. JANUVIA [Suspect]
     Indication: DIABETES MELLITUS
     Dosage: 100 MG/DAILY/PO
     Route: 048
     Dates: start: 20090627
  2. LOVAZA [Concomitant]
  3. GEMFIBROZIL [Concomitant]
  4. TEMAZEPAM [Concomitant]

REACTIONS (3)
  - BLOOD GLUCOSE INCREASED [None]
  - DRUG INEFFECTIVE [None]
  - WRONG TECHNIQUE IN DRUG USAGE PROCESS [None]
